FAERS Safety Report 4308828-3 (Version None)
Quarter: 2004Q1

REPORT INFORMATION
  Report Type: 
  Country: None (occurrence: None)
  Receive Date: 20040227
  Receipt Date: 20040224
  Transmission Date: 20041129
  Serious: Yes (Death, Hospitalization)
  Sender: FDA-Public Use
  Company Number: 2004UW01947

PATIENT
  Age: 54 Year
  Sex: Male
  Weight: 54.4316 kg

DRUGS (7)
  1. IRESSA [Suspect]
     Indication: LUNG NEOPLASM MALIGNANT
     Dosage: 250 MG DAILY PO
     Route: 048
     Dates: start: 20030718, end: 20030920
  2. MORPHINE [Concomitant]
  3. OXANDRIN [Concomitant]
  4. MEGACE [Concomitant]
  5. COMPAZINE [Concomitant]
  6. CISPLATIN [Concomitant]
  7. GEMZAR [Concomitant]

REACTIONS (2)
  - ACUTE RESPIRATORY FAILURE [None]
  - PNEUMONITIS [None]
